FAERS Safety Report 10511630 (Version 2)
Quarter: 2014Q4

REPORT INFORMATION
  Report Type: Spontaneous
  Country: FR (occurrence: FR)
  Receive Date: 20141010
  Receipt Date: 20141029
  Transmission Date: 20150528
  Serious: Yes (Hospitalization)
  Sender: FDA-Public Use
  Company Number: FR-BRISTOL-MYERS SQUIBB COMPANY-21465596

PATIENT
  Age: 45 Year
  Sex: Female
  Weight: 58 kg

DRUGS (2)
  1. COMBIVIR [Suspect]
     Active Substance: LAMIVUDINE\ZIDOVUDINE
     Dosage: 1 DF = 150/300MG TAB
     Route: 048
     Dates: start: 20110718, end: 20131025
  2. REYATAZ [Suspect]
     Active Substance: ATAZANAVIR SULFATE
     Dosage: 25OCT13?REINTRODUCED:27JAN14
     Route: 048
     Dates: start: 20110718

REACTIONS (3)
  - Hepatocellular injury [Recovered/Resolved]
  - Blood bilirubin increased [Recovered/Resolved]
  - Cholestasis [Recovered/Resolved]

NARRATIVE: CASE EVENT DATE: 20111013
